FAERS Safety Report 4668283-0 (Version None)
Quarter: 2005Q2

REPORT INFORMATION
  Report Type: 
  Country: None (occurrence: None)
  Receive Date: 20050523
  Receipt Date: 20050510
  Transmission Date: 20051028
  Serious: Yes (Hospitalization)
  Sender: FDA-Public Use
  Company Number: PHFR2005GB01763

PATIENT

DRUGS (2)
  1. FAMVIR [Suspect]
     Indication: MEDICATION ERROR
     Dosage: 250 MG, TID
  2. FAMVIR [Suspect]
     Dosage: 750 MG, TID

REACTIONS (2)
  - MEDICATION ERROR [None]
  - NAUSEA [None]
